FAERS Safety Report 16361855 (Version 2)
Quarter: 2019Q4

REPORT INFORMATION
  Report Type: Spontaneous
  Country: US (occurrence: US)
  Receive Date: 20190528
  Receipt Date: 20191106
  Transmission Date: 20200122
  Serious: Yes (Other)
  Sender: FDA-Public Use
  Company Number: US-PFIZER INC-2019225181

PATIENT
  Age: 52 Year
  Sex: Female

DRUGS (2)
  1. DILANTIN-125 [Suspect]
     Active Substance: PHENYTOIN
     Indication: SEIZURE
     Dosage: UNK
     Route: 048
  2. ZITHROMAX [Concomitant]
     Active Substance: AZITHROMYCIN DIHYDRATE
     Dosage: UNK, AS DIRECTED FOR 5 DAYS (DAY 1- TWO TABLETS ONE TIME, DAY 2, 3, 4, 5 TAKE ONE TABLET ONCE DAILY
     Route: 048

REACTIONS (3)
  - Cerebellar atrophy [Unknown]
  - Migraine [Unknown]
  - Mood swings [Unknown]
